FAERS Safety Report 7836608 (Version 3)
Quarter: 2014Q2

REPORT INFORMATION
  Report Type: Spontaneous
  Country: US (occurrence: US)
  Receive Date: 20110302
  Receipt Date: 20140618
  Transmission Date: 20141212
  Serious: Yes (Other)
  Sender: FDA-Public Use
  Company Number: US-ELI_LILLY_AND_COMPANY-US201102006355

PATIENT
  Age: 55 Year
  Sex: Female

DRUGS (1)
  1. FORTEO [Suspect]
     Indication: HIP FRACTURE
     Dosage: 20 UG, DAILY (1/D)
     Route: 065
     Dates: start: 20110201, end: 20110213

REACTIONS (17)
  - Coma [Recovered/Resolved]
  - Thrombosis [Unknown]
  - Hypercalcaemia [Unknown]
  - Gait disturbance [Unknown]
  - Memory impairment [Unknown]
  - Somnolence [Unknown]
  - Feeling abnormal [Unknown]
  - Fatigue [Unknown]
  - Muscular weakness [Unknown]
  - Crying [Unknown]
  - Malaise [Unknown]
  - Off label use [Recovered/Resolved]
  - Bone development abnormal [Unknown]
  - Gingival disorder [Unknown]
  - Decreased appetite [Unknown]
  - Sluggishness [Unknown]
  - Depression [Unknown]
